FAERS Safety Report 6387192-2 (Version None)
Quarter: 2009Q4

REPORT INFORMATION
  Report Type: 
  Country: None (occurrence: None)
  Receive Date: 20091002
  Receipt Date: 20090925
  Transmission Date: 20100525
  Serious: Yes (Death, Other)
  Sender: FDA-Public Use
  Company Number: US-BAXTER-2009BH013544

PATIENT
  Age: 81 Year
  Sex: Male

DRUGS (6)
  1. HEPARIN SODIUM INJECTION [Suspect]
     Indication: DIALYSIS
     Route: 065
     Dates: start: 20070809, end: 20070809
  2. HEPARIN SODIUM INJECTION [Suspect]
     Route: 065
     Dates: start: 20070810, end: 20070810
  3. HEPARIN SODIUM INJECTION [Suspect]
     Route: 065
     Dates: start: 20070812, end: 20070812
  4. HEPARIN SODIUM INJECTION [Suspect]
     Route: 065
     Dates: start: 20070813, end: 20070813
  5. ANTIHYPERTENSIVES [Concomitant]
     Indication: DRUG USE FOR UNKNOWN INDICATION
     Route: 065
  6. ANTI-DIABETICS [Concomitant]
     Indication: DRUG USE FOR UNKNOWN INDICATION
     Route: 065

REACTIONS (5)
  - ANGIOPATHY [None]
  - INFECTION [None]
  - PNEUMONIA [None]
  - RENAL FAILURE [None]
  - THROMBOSIS [None]
